FAERS Safety Report 7563255-0 (Version None)
Quarter: 2011Q2

REPORT INFORMATION
  Report Type: 
  Country: None (occurrence: None)
  Receive Date: 20110621
  Receipt Date: 20110621
  Transmission Date: 20111010
  Serious: Yes (Life-Threatening, Hospitalization)
  Sender: FDA-Public Use
  Company Number: None

PATIENT
  Age: 80 Year
  Sex: Male
  Weight: 67.7 kg

DRUGS (11)
  1. COUMADIN [Concomitant]
  2. CILOSTAZOL [Concomitant]
  3. DOXYCYCLINE HYCLATE [Concomitant]
  4. NEXIUM [Concomitant]
  5. FERROUS SULFATE TAB [Concomitant]
  6. PLAVIX [Concomitant]
  7. GABAPENTIN [Concomitant]
  8. SIMVASTATIN [Concomitant]
  9. TRICOR [Concomitant]
  10. ZOLPIDEM TARTRATE [Concomitant]
  11. RAMIPRIL [Suspect]
     Dosage: 10 MG DAILY PO
     Route: 048

REACTIONS (2)
  - ANGIOEDEMA [None]
  - DYSPHAGIA [None]
